FAERS Safety Report 5792266-0 (Version None)
Quarter: 2008Q2

REPORT INFORMATION
  Report Type: 
  Country: None (occurrence: None)
  Receive Date: 20080626
  Receipt Date: 20080617
  Transmission Date: 20081010
  Serious: Yes (Hospitalization)
  Sender: FDA-Public Use
  Company Number: US-ELI_LILLY_AND_COMPANY-US200806003902

PATIENT
  Sex: Female

DRUGS (3)
  1. BYETTA [Suspect]
     Indication: TYPE 2 DIABETES MELLITUS
     Dosage: 10 UG, 2/D
     Route: 058
     Dates: start: 20070101, end: 20070101
  2. NOVOLOG [Concomitant]
     Indication: DIABETES MELLITUS
     Dosage: UNK U, UNK
     Dates: start: 20060101
  3. LANTUS [Concomitant]
     Indication: DIABETES MELLITUS
     Dosage: 50 U, EACH EVENING

REACTIONS (3)
  - ABDOMINAL PAIN UPPER [None]
  - KIDNEY INFECTION [None]
  - URETHRAL STENT INSERTION [None]
